FAERS Safety Report 8225067-4 (Version None)
Quarter: 2012Q1

REPORT INFORMATION
  Report Type: 
  Country: None (occurrence: None)
  Receive Date: 20120321
  Receipt Date: 20120306
  Transmission Date: 20120608
  Serious: Yes (Life-Threatening, Hospitalization, Disabling)
  Sender: FDA-Public Use
  Company Number: US-ROCHE-1042478

PATIENT
  Sex: Female
  Weight: 90.5 kg

DRUGS (22)
  1. PROTONIX [Concomitant]
     Route: 048
     Dates: start: 20110826, end: 20110906
  2. LORTAB [Concomitant]
     Indication: ARTHRITIS
     Route: 048
     Dates: start: 20110316
  3. PEGINTERFERON ALFA-2A [Suspect]
     Route: 058
     Dates: start: 20110420, end: 20110629
  4. ZOLPIDEM [Concomitant]
     Indication: INSOMNIA
     Route: 048
     Dates: start: 20110316
  5. BLINDED RO 5466731 (HCV NS5B INHIBITOR) [Suspect]
     Indication: HEPATITIS C
     Dosage: DATE OF DICONTINUATION: 05/JUL/2011
     Dates: start: 20110316, end: 20110705
  6. PEGINTERFERON ALFA-2A [Suspect]
     Indication: HEPATITIS C
     Route: 058
     Dates: start: 20110316, end: 20110420
  7. COPEGUS [Suspect]
     Indication: HEPATITIS C
     Route: 048
     Dates: start: 20110316, end: 20110427
  8. EPOETIN ALFA [Concomitant]
     Indication: ANAEMIA
     Dosage: 4000 UNITS
     Route: 058
     Dates: start: 20110421, end: 20110705
  9. RED CELLS PACK [Concomitant]
     Indication: ANAEMIA
     Dosage: 3 UNITS
     Route: 042
     Dates: start: 20110614, end: 20110614
  10. RABEPRAZOLE SODIUM [Concomitant]
     Indication: GASTROOESOPHAGEAL REFLUX DISEASE
     Route: 048
     Dates: start: 20110720
  11. ACETAMINOPHEN [Concomitant]
     Route: 048
     Dates: start: 20110614, end: 20110614
  12. COPEGUS [Suspect]
     Route: 048
     Dates: start: 20110510, end: 20110705
  13. LORTAB [Concomitant]
     Route: 048
     Dates: start: 20110316
  14. LASIX [Concomitant]
     Dates: start: 20110614, end: 20110614
  15. ESOMEPRAZOLE [Concomitant]
     Dates: start: 20110720, end: 20110722
  16. COPEGUS [Suspect]
     Route: 048
     Dates: start: 20110427, end: 20110510
  17. LASIX [Concomitant]
     Indication: FLUID OVERLOAD
     Route: 048
     Dates: start: 20110901
  18. PROMETHAZINE [Concomitant]
     Indication: NAUSEA
     Route: 048
     Dates: start: 20110613, end: 20110817
  19. LITHIUM CARBONATE [Concomitant]
     Indication: DEPRESSION
     Route: 048
     Dates: start: 20110413
  20. ALPRAZOLAM [Concomitant]
     Indication: ANXIETY
     Route: 048
     Dates: start: 20110413
  21. SPIRONOLACTONE [Concomitant]
     Indication: OEDEMA
     Route: 048
     Dates: start: 20110802
  22. DIPHENHYDRAMINE HCL [Concomitant]
     Route: 048
     Dates: start: 20110614, end: 20110614

REACTIONS (4)
  - B-CELL LYMPHOMA STAGE IV [None]
  - PULMONARY VASCULITIS [None]
  - PANCYTOPENIA [None]
  - PNEUMONIA [None]
